FAERS Safety Report 11339514 (Version 1)
Quarter: 2015Q3

REPORT INFORMATION
  Report Type: Spontaneous
  Country: US (occurrence: US)
  Receive Date: 20150805
  Receipt Date: 20150805
  Transmission Date: 20151125
  Serious: Yes (Other)
  Sender: FDA-Public Use
  Company Number: US-HOSPIRA-2959288

PATIENT
  Sex: Male

DRUGS (2)
  1. KETOROLAC [Suspect]
     Active Substance: KETOROLAC\KETOROLAC TROMETHAMINE
     Indication: SPINAL PAIN
     Route: 042
     Dates: start: 20150720, end: 20150723
  2. KETOROLAC [Suspect]
     Active Substance: KETOROLAC\KETOROLAC TROMETHAMINE
     Indication: SPINAL PAIN
     Route: 042
     Dates: start: 20150720, end: 20150723

REACTIONS (11)
  - Peripheral swelling [Unknown]
  - Rectal haemorrhage [Unknown]
  - Skin disorder [Unknown]
  - Brain oedema [Unknown]
  - Pain [Unknown]
  - Thrombosis [Unknown]
  - Dysuria [Unknown]
  - Feeling hot [Unknown]
  - Scar [Unknown]
  - Lymphadenopathy [Unknown]
  - Dizziness [Unknown]
